FAERS Safety Report 22068123 (Version 1)
Quarter: 2023Q1

REPORT INFORMATION
  Report Type: Spontaneous
  Country: DE (occurrence: DE)
  Receive Date: 20230307
  Receipt Date: 20230307
  Transmission Date: 20230418
  Serious: Yes (Hospitalization, Other)
  Sender: FDA-Public Use
  Company Number: None

PATIENT
  Age: 69 Year
  Sex: Male
  Weight: 72.5 kg

DRUGS (14)
  1. FLUVASTATIN [Suspect]
     Active Substance: FLUVASTATIN SODIUM
     Indication: Product used for unknown indication
     Dosage: 20 MG EVERY OTHER DAY
     Route: 065
     Dates: start: 20221024, end: 20221117
  2. BEMPEDOIC ACID [Suspect]
     Active Substance: BEMPEDOIC ACID
     Indication: Product used for unknown indication
     Route: 065
     Dates: start: 20220912, end: 20221013
  3. BEMPEDOIC ACID [Suspect]
     Active Substance: BEMPEDOIC ACID
     Route: 065
     Dates: start: 20210901, end: 20210929
  4. BEMPEDOIC ACID [Suspect]
     Active Substance: BEMPEDOIC ACID
     Route: 065
     Dates: start: 20220207, end: 20220823
  5. BISOPROLOL [Concomitant]
     Active Substance: BISOPROLOL
     Indication: Product used for unknown indication
     Dosage: 1.25 MILLIGRAM DAILY; 1-0-0
     Route: 065
     Dates: start: 20191122
  6. PANTOPRAZOLE [Concomitant]
     Active Substance: PANTOPRAZOLE
     Indication: Product used for unknown indication
     Dosage: 40 MILLIGRAM DAILY; 1-0-0
     Route: 065
  7. CANDESARTAN [Concomitant]
     Active Substance: CANDESARTAN
     Indication: Product used for unknown indication
     Dosage: 40 MILLIGRAM DAILY; 0-1-1
     Route: 065
     Dates: start: 20191122
  8. LERCANIDIPINE [Concomitant]
     Active Substance: LERCANIDIPINE
     Indication: Product used for unknown indication
     Dosage: 15 MILLIGRAM DAILY; 1-0-0-1/2
     Route: 065
     Dates: start: 20191122
  9. METAMIZOLE [Concomitant]
     Active Substance: METAMIZOLE
     Indication: Product used for unknown indication
     Dosage: 1500 MILLIGRAM DAILY; 1-1-1 ONLY IN WEEK 28 2022
     Route: 065
     Dates: start: 20220711, end: 20220718
  10. REPATHA [Concomitant]
     Active Substance: EVOLOCUMAB
     Indication: Product used for unknown indication
     Dosage: EVERY 14 DAYS
     Route: 065
     Dates: start: 20211018
  11. FERRO SANOL COMP [Concomitant]
     Indication: Iron deficiency
     Dosage: 90 MILLIGRAM DAILY; 1-1-1 30 MG, 30 MG/0.5 MG/2.5 MCG
     Route: 065
  12. FERRO SANOL COMP [Concomitant]
     Indication: Vitamin B12 deficiency
  13. ASPIRIN [Concomitant]
     Active Substance: ASPIRIN
     Indication: Product used for unknown indication
     Dosage: 100 MILLIGRAM DAILY; 0-1-0
     Route: 065
     Dates: start: 20191122
  14. VITAMIN B12 [Concomitant]
     Active Substance: CYANOCOBALAMIN
     Indication: Iron deficiency
     Dosage: 1X MON. S.C. LAST BEFORE 8D
     Route: 065

REACTIONS (21)
  - Monoparesis [Unknown]
  - Seizure [Recovered/Resolved]
  - Epilepsy [Unknown]
  - Hemiparesis [Unknown]
  - Bone pain [Unknown]
  - Dizziness [Unknown]
  - Fear of disease [Unknown]
  - Headache [Unknown]
  - Malaise [Unknown]
  - Middle insomnia [Unknown]
  - Muscle spasms [Unknown]
  - Muscular weakness [Unknown]
  - Myalgia [Unknown]
  - Nausea [Unknown]
  - Pain in extremity [Unknown]
  - Sleep disorder [Unknown]
  - Dysstasia [Unknown]
  - Tongue biting [Unknown]
  - Adverse reaction [Unknown]
  - Arthralgia [Unknown]
  - Blood creatine phosphokinase increased [Unknown]

NARRATIVE: CASE EVENT DATE: 20221101
